APPROVED DRUG PRODUCT: DOFETILDE
Active Ingredient: DOFETILIDE
Strength: 0.25MG
Dosage Form/Route: CAPSULE;ORAL
Application: A210740 | Product #002 | TE Code: AB
Applicant: AUROBINDO PHARMA LTD
Approved: Jan 22, 2019 | RLD: No | RS: No | Type: RX